FAERS Safety Report 8340115-9 (Version None)
Quarter: 2012Q2

REPORT INFORMATION
  Report Type: 
  Country: None (occurrence: None)
  Receive Date: 20120507
  Receipt Date: 20120426
  Transmission Date: 20120825
  Serious: Yes (Hospitalization)
  Sender: FDA-Public Use
  Company Number: AT-ASTRAZENECA-2012SE27173

PATIENT
  Age: 43 Year
  Sex: Male

DRUGS (2)
  1. SEROQUEL XR [Suspect]
     Dosage: 30 DF ( 6 GM) ONCE/SINGLE ADMINISTRATION
     Route: 048
     Dates: start: 20111208
  2. ETHANOL [Suspect]
     Route: 048
     Dates: start: 20111208

REACTIONS (4)
  - HYPOTENSION [None]
  - INTENTIONAL OVERDOSE [None]
  - SOMNOLENCE [None]
  - SINUS TACHYCARDIA [None]
